FAERS Safety Report 11971609 (Version 1)
Quarter: 2016Q1

REPORT INFORMATION
  Report Type: Spontaneous
  Country: US (occurrence: US)
  Receive Date: 20160128
  Receipt Date: 20160128
  Transmission Date: 20160526
  Serious: Yes (Other)
  Sender: FDA-Public Use
  Company Number: US-LPDUSPRD-20160057

PATIENT
  Age: 24 Year
  Sex: Female
  Weight: 34 kg

DRUGS (15)
  1. VASOPRESSIN INJECTION, USP (0410-10) [Suspect]
     Active Substance: VASOPRESSIN
     Dosage: 0.008-0.033 UNITS/MIN
     Route: 065
  2. MONTELUKAST SODIUM. [Concomitant]
     Active Substance: MONTELUKAST SODIUM
     Dosage: DOSE UNKNOWN
     Route: 055
  3. L-CARNITINE [Concomitant]
     Active Substance: LEVOCARNITINE
     Dosage: DOSE UNKNOWN
     Route: 065
  4. ENOXAPARIN [Concomitant]
     Active Substance: ENOXAPARIN
     Dosage: DOSE UNKNOWN
     Route: 065
  5. MIDAZOLAM [Concomitant]
     Active Substance: MIDAZOLAM\MIDAZOLAM HYDROCHLORIDE
     Dosage: DOSE UNKNOWN
     Route: 065
  6. LAMOTRIGINE. [Concomitant]
     Active Substance: LAMOTRIGINE
     Dosage: DOSE UNKNOWN
     Route: 065
  7. TOTAL PARENTERAL NUTRITION (54MEQ/L SODIUM CHLORIDE/15MEQ/L POTASSIUM CHLORIDE) [Concomitant]
     Dosage: 40 MEQ/L
     Route: 065
  8. DIAZEPAM. [Concomitant]
     Active Substance: DIAZEPAM
     Dosage: DOSE UNKNOWN
     Route: 065
  9. SODIUM CHLORIDE. [Concomitant]
     Active Substance: SODIUM CHLORIDE
     Dosage: 1 L
     Route: 040
  10. SCOPOLAMINE PATCH [Concomitant]
     Active Substance: SCOPOLAMINE
     Dosage: DOSE UNKNOWN
     Route: 065
  11. ETHINYL ESTRADIOL WITH DESOGESTREL [Concomitant]
     Dosage: DOSE UNKNOWN
     Route: 065
  12. FENTANYL. [Concomitant]
     Active Substance: FENTANYL
     Dosage: DOSE UNKNOWN
     Route: 065
  13. ANTIBIOTICS [Concomitant]
     Active Substance: UNSPECIFIED INGREDIENT
     Dosage: DOSE UNKNOWN
     Route: 065
  14. PANTOPRAZOLE [Concomitant]
     Active Substance: PANTOPRAZOLE SODIUM
     Dosage: DOSE UNKNOWN
     Route: 065
  15. LEVETIRACETAM INJECTION (0517-3605-01) [Concomitant]
     Active Substance: LEVETIRACETAM
     Dosage: 5 UG/MIN

REACTIONS (1)
  - Hyponatraemia [Unknown]
